FAERS Safety Report 8124964-8 (Version None)
Quarter: 2012Q1

REPORT INFORMATION
  Report Type: 
  Country: None (occurrence: None)
  Receive Date: 20120209
  Receipt Date: 20120125
  Transmission Date: 20120608
  Serious: Yes (Hospitalization)
  Sender: FDA-Public Use
  Company Number: US-UCBSA-050376

PATIENT
  Sex: Male

DRUGS (6)
  1. KEPPRA [Suspect]
     Route: 048
  2. VIMPAT [Suspect]
     Indication: STATUS EPILEPTICUS
     Route: 042
  3. PHENOBARBITARAL DRIP [Suspect]
     Indication: STATUS EPILEPTICUS
     Dosage: 2MG/KG DRIP
  4. KEPPRA [Suspect]
     Route: 042
  5. PHENYTOIN [Suspect]
     Indication: STATUS EPILEPTICUS
     Dosage: 200-100-200 MG
     Route: 042
  6. VANCOMYCIN [Concomitant]

REACTIONS (3)
  - STATUS EPILEPTICUS [None]
  - ANGIOEDEMA [None]
  - PAIN IN EXTREMITY [None]
